FAERS Safety Report 9460083 (Version 1)
Quarter: 2013Q3

REPORT INFORMATION
  Report Type: Spontaneous
  Country: US (occurrence: US)
  Receive Date: 20130815
  Receipt Date: 20130815
  Transmission Date: 20140515
  Serious: Yes (Hospitalization)
  Sender: FDA-Public Use
  Company Number: US-GILEAD-2013-0081318

PATIENT
  Age: 15 Year
  Sex: Male

DRUGS (3)
  1. CAYSTON [Suspect]
     Indication: PSEUDOMONAS INFECTION
     Dosage: UNK
     Route: 055
     Dates: start: 201207
  2. CAYSTON [Suspect]
     Dosage: UNK
     Dates: start: 201211
  3. TOBI                               /00304201/ [Concomitant]

REACTIONS (1)
  - Constipation [Unknown]
